FAERS Safety Report 8199971-X (Version None)
Quarter: 2012Q1

REPORT INFORMATION
  Report Type: 
  Country: None (occurrence: None)
  Receive Date: 20120312
  Receipt Date: 20120309
  Transmission Date: 20120608
  Serious: No
  Sender: FDA-Public Use
  Company Number: US-PFIZER INC-2012063680

PATIENT
  Sex: Male
  Weight: 113 kg

DRUGS (5)
  1. HYDROCORTISONE [Suspect]
     Indication: RASH
     Dosage: UNK
     Route: 061
     Dates: start: 20120201, end: 20120201
  2. ADVAIR DISKUS 100/50 [Concomitant]
     Indication: EMPHYSEMA
     Dosage: 100/50 MCG AS ONE PUFF, 2X/DAY
  3. METOPROLOL [Concomitant]
     Indication: CARDIAC DISORDER
     Dosage: 25 MG, DAILY
  4. CHANTIX [Suspect]
     Indication: SMOKING CESSATION THERAPY
     Dosage: 0.5MG, DAILY
     Route: 048
     Dates: start: 20120115, end: 20120121
  5. CHANTIX [Suspect]
     Dosage: 1 MG, DAILY
     Route: 048
     Dates: start: 20120122, end: 20120301

REACTIONS (2)
  - RASH [None]
  - DRUG INEFFECTIVE [None]
